FAERS Safety Report 17525822 (Version 1)
Quarter: 2020Q1

REPORT INFORMATION
  Report Type: Spontaneous
  Country: US (occurrence: US)
  Receive Date: 20200303
  Receipt Date: 20200303
  Transmission Date: 20200409
  Serious: Yes (Hospitalization)
  Sender: FDA-Public Use
  Company Number: None

PATIENT
  Age: 73 Year
  Sex: Male
  Weight: 272 kg

DRUGS (1)
  1. SEVOFLURANE (SEVOFLURANE LIQUID, INHL) [Suspect]
     Active Substance: SEVOFLURANE
     Indication: SURGERY
     Route: 055
     Dates: start: 20191217, end: 20191217

REACTIONS (1)
  - Pneumonitis [None]

NARRATIVE: CASE EVENT DATE: 20191217
